FAERS Safety Report 15879253 (Version 1)
Quarter: 2019Q1

REPORT INFORMATION
  Report Type: Report from Study
  Country: US (occurrence: US)
  Receive Date: 20190128
  Receipt Date: 20190128
  Transmission Date: 20190417
  Serious: Yes (Hospitalization, Other)
  Sender: FDA-Public Use
  Company Number: US-GILEAD-2019-0387009

PATIENT
  Age: 59 Year
  Sex: Male

DRUGS (2)
  1. TADALAFIL. [Concomitant]
     Active Substance: TADALAFIL
  2. AMBRISENTAN [Suspect]
     Active Substance: AMBRISENTAN
     Indication: PULMONARY HYPERTENSION
     Dosage: 5 MG, QD
     Route: 065
     Dates: start: 20181126

REACTIONS (3)
  - Pulmonary arterial hypertension [Unknown]
  - Cardiac failure [Not Recovered/Not Resolved]
  - Fluid retention [Unknown]
